FAERS Safety Report 15577648 (Version 1)
Quarter: 2018Q4

REPORT INFORMATION
  Report Type: Spontaneous
  Country: IN (occurrence: IN)
  Receive Date: 20181102
  Receipt Date: 20181102
  Transmission Date: 20190205
  Serious: No
  Sender: FDA-Public Use
  Company Number: IN-LUPIN PHARMACEUTICALS INC.-2017-06577

PATIENT
  Age: 33 Year
  Sex: Female

DRUGS (1)
  1. CEFTRIAXONE INJECTION [Suspect]
     Active Substance: CEFTRIAXONE SODIUM
     Indication: PRODUCT USED FOR UNKNOWN INDICATION
     Dosage: 0.5 ML OF 2 GRAMS
     Route: 023

REACTIONS (2)
  - Exposure during pregnancy [Unknown]
  - Drug hypersensitivity [Recovered/Resolved]
